FAERS Safety Report 10710956 (Version 2)
Quarter: 2015Q1

REPORT INFORMATION
  Report Type: Report from Study
  Country: CA (occurrence: CA)
  Receive Date: 20150114
  Receipt Date: 20150116
  Transmission Date: 20150721
  Serious: Yes (Death)
  Sender: FDA-Public Use
  Company Number: PHHY2015CA003314

PATIENT
  Age: 66 Year
  Sex: Male

DRUGS (2)
  1. ATROPINE [Concomitant]
     Active Substance: ATROPINE
     Indication: PRODUCT USED FOR UNKNOWN INDICATION
     Route: 065
  2. CLOZARIL [Suspect]
     Active Substance: CLOZAPINE
     Indication: SCHIZOPHRENIA
     Dosage: 500 OT, QD
     Route: 048
     Dates: start: 20000412

REACTIONS (1)
  - Death [Fatal]

NARRATIVE: CASE EVENT DATE: 20150101
